FAERS Safety Report 16139772 (Version 3)
Quarter: 2019Q2

REPORT INFORMATION
  Report Type: Spontaneous
  Country: US (occurrence: US)
  Receive Date: 20190401
  Receipt Date: 20190430
  Transmission Date: 20190711
  Serious: Yes (Hospitalization, Other)
  Sender: FDA-Public Use
  Company Number: US-BAYER-2019-056472

PATIENT
  Age: 21 Year
  Sex: Female
  Weight: 50.79 kg

DRUGS (2)
  1. MIRENA [Suspect]
     Active Substance: LEVONORGESTREL
     Indication: CONTRACEPTION
     Dosage: 20 MCG/24HR, CONT
     Route: 015
     Dates: start: 20181001, end: 201902
  2. MIRENA [Suspect]
     Active Substance: LEVONORGESTREL
     Indication: CONTRACEPTION

REACTIONS (10)
  - Vaginal haemorrhage [None]
  - Sepsis [None]
  - Haemorrhagic ovarian cyst [None]
  - Abdominal pain [None]
  - Hypomenorrhoea [None]
  - Abscess [None]
  - Autoimmune disorder [None]
  - Ovarian cyst ruptured [None]
  - Pyrexia [None]
  - Pelvic haemorrhage [None]

NARRATIVE: CASE EVENT DATE: 201902
